FAERS Safety Report 5010790-5 (Version None)
Quarter: 2006Q2

REPORT INFORMATION
  Report Type: 
  Country: None (occurrence: None)
  Receive Date: 20060525
  Receipt Date: 20060515
  Transmission Date: 20061013
  Serious: Yes (Hospitalization)
  Sender: FDA-Public Use
  Company Number: 2006AP02270

PATIENT
  Age: 75 Year
  Sex: Male

DRUGS (2)
  1. IRESSA [Suspect]
     Indication: NON-SMALL CELL LUNG CANCER
     Route: 048
     Dates: start: 20060508
  2. MAXIPIME [Suspect]
     Route: 042
     Dates: start: 20060512, end: 20060515

REACTIONS (1)
  - THROMBOCYTOPENIA [None]
